FAERS Safety Report 8581434-0 (Version None)
Quarter: 2012Q3

REPORT INFORMATION
  Report Type: 
  Country: None (occurrence: None)
  Receive Date: 20120809
  Receipt Date: 20120802
  Transmission Date: 20120928
  Serious: Yes (Other)
  Sender: FDA-Public Use
  Company Number: PHHY2012US067611

PATIENT
  Sex: Female

DRUGS (1)
  1. GENTEAL [Suspect]
     Dosage: UNK UKN, UNK
     Dates: start: 20120729, end: 20120730

REACTIONS (4)
  - OCULAR DISCOMFORT [None]
  - EYE PAIN [None]
  - EYE PRURITUS [None]
  - EYE IRRITATION [None]
